FAERS Safety Report 9866135 (Version 2)
Quarter: 2014Q1

REPORT INFORMATION
  Report Type: Spontaneous
  Country: US (occurrence: US)
  Receive Date: 20140203
  Receipt Date: 20140203
  Transmission Date: 20141002
  Serious: No
  Sender: FDA-Public Use
  Company Number: US-ALLERGAN-1315719US

PATIENT
  Age: 77 Year
  Sex: Male

DRUGS (3)
  1. RESTASIS [Suspect]
     Indication: DRY EYE
     Dosage: 2 GTT, UNK, QOD- BID
     Route: 047
     Dates: start: 2012
  2. RESTASIS [Suspect]
     Dosage: 2 GTT, UNK, QOD- BID
     Route: 047
     Dates: start: 2012
  3. SYSTANE [Concomitant]
     Indication: DRY EYE
     Dosage: 2 GTT, UNK, BID-TID
     Route: 047

REACTIONS (6)
  - Rhinorrhoea [Not Recovered/Not Resolved]
  - Therapeutic response unexpected [Unknown]
  - Inappropriate schedule of drug administration [Unknown]
  - Incorrect dose administered [Unknown]
  - Instillation site pain [Not Recovered/Not Resolved]
  - Foreign body sensation in eyes [Not Recovered/Not Resolved]
